FAERS Safety Report 10636021 (Version 7)
Quarter: 2015Q2

REPORT INFORMATION
  Report Type: Report from Study
  Country: DE (occurrence: DE)
  Receive Date: 20141205
  Receipt Date: 20150603
  Transmission Date: 20150821
  Serious: Yes (Other)
  Sender: FDA-Public Use
  Company Number: PHHY2014DE154453

PATIENT
  Age: 45 Year
  Sex: Male
  Weight: 67 kg

DRUGS (1)
  1. ZYKADIA [Suspect]
     Active Substance: CERITINIB
     Indication: NON-SMALL CELL LUNG CANCER
     Dosage: 750 MG, QD
     Route: 048
     Dates: start: 201408, end: 201412

REACTIONS (8)
  - Metastases to lung [Not Recovered/Not Resolved]
  - Nausea [Unknown]
  - Weight decreased [Unknown]
  - Malignant neoplasm progression [Unknown]
  - Necrosis [Recovered/Resolved]
  - Skin mass [Unknown]
  - Non-small cell lung cancer [Unknown]
  - Vomiting [Unknown]

NARRATIVE: CASE EVENT DATE: 201411
